FAERS Safety Report 8908230 (Version 1)
Quarter: 2012Q4

REPORT INFORMATION
  Report Type: 
  Country: MX (occurrence: MX)
  Receive Date: 20121114
  Receipt Date: 20121114
  Transmission Date: 20130627
  Serious: Yes (Death)
  Sender: FDA-Public Use
  Company Number: PHHY2012MX104564

PATIENT
  Sex: Female

DRUGS (2)
  1. DIOVAN [Suspect]
     Indication: HYPERTENSION
     Dosage: 1 tablet (320mg) daily
  2. CALTRATE [Concomitant]
     Dosage: 1 DF per day
     Dates: start: 200811

REACTIONS (1)
  - Death [Fatal]
